FAERS Safety Report 4899402-9 (Version None)
Quarter: 2006Q1

REPORT INFORMATION
  Report Type: 
  Country: None (occurrence: None)
  Receive Date: 20060106
  Receipt Date: 20050912
  Transmission Date: 20060701
  Serious: No
  Sender: FDA-Public Use
  Company Number: 200511493BWH

PATIENT
  Age: 67 Year
  Sex: Male

DRUGS (5)
  1. LEVITRA [Suspect]
     Indication: ERECTILE DYSFUNCTION
     Dosage: 20 MG, ONCE, ORAL
     Route: 048
     Dates: start: 20050722, end: 20050725
  2. LEVITRA [Suspect]
     Indication: ERECTILE DYSFUNCTION
     Dosage: 20 MG, ONCE, ORAL
     Route: 048
     Dates: start: 20050722
  3. . [Concomitant]
  4. BLOOD PRESSURE MEDICATIONS (NOS) [Concomitant]
  5. GOUT MEDICATION [Concomitant]

REACTIONS (3)
  - ERECTILE DYSFUNCTION [None]
  - HEADACHE [None]
  - NASAL CONGESTION [None]
